FAERS Safety Report 4318131-3 (Version None)
Quarter: 2004Q1

REPORT INFORMATION
  Report Type: 
  Country: None (occurrence: None)
  Receive Date: 20040317
  Receipt Date: 20040102
  Transmission Date: 20041129
  Serious: Yes (Hospitalization, Other)
  Sender: FDA-Public Use
  Company Number: US-GLAXOSMITHKLINE-A0492417A

PATIENT
  Sex: Male

DRUGS (17)
  1. AVANDIA [Suspect]
     Dosage: 4MG PER DAY
     Dates: start: 20010613
  2. ZAROXOLYN [Concomitant]
  3. LASIX [Concomitant]
  4. BAYCOL [Concomitant]
  5. MAGNESIUM [Concomitant]
  6. PAXIL [Concomitant]
  7. BUMEX [Concomitant]
  8. LIPITOR [Concomitant]
  9. TRICOR [Concomitant]
  10. ZYRTEC [Concomitant]
  11. COUMADIN [Concomitant]
  12. PLAVIX [Concomitant]
  13. K-DUR 10 [Concomitant]
  14. PREVACID [Concomitant]
  15. TOPROL-XL [Concomitant]
  16. CORDARONE [Concomitant]
  17. NITROSTAT [Concomitant]

REACTIONS (13)
  - ASTHENIA [None]
  - ATRIAL FIBRILLATION [None]
  - BRADYCARDIA [None]
  - CARDIAC FAILURE CONGESTIVE [None]
  - DIZZINESS [None]
  - FATIGUE [None]
  - HYPOTENSION [None]
  - IMPAIRED GASTRIC EMPTYING [None]
  - OEDEMA PERIPHERAL [None]
  - PANCREATITIS [None]
  - RASH [None]
  - VENTRICULAR DYSFUNCTION [None]
  - WEIGHT INCREASED [None]
